FAERS Safety Report 4464567-X (Version None)
Quarter: 2004Q3

REPORT INFORMATION
  Report Type: 
  Country: None (occurrence: None)
  Receive Date: 20040929
  Receipt Date: 20040912
  Transmission Date: 20050211
  Serious: Yes (Death, Hospitalization)
  Sender: FDA-Public Use
  Company Number: A01200404478

PATIENT
  Sex: Female

DRUGS (1)
  1. PLAQUINOL- (HYDROXYCHLOROQUINE SULFATE) - TABLET- 200MG [Suspect]
     Indication: RHEUMATOID ARTHRITIS
     Dosage: 200 MG OD, ORAL
     Route: 048

REACTIONS (2)
  - MUCOCUTANEOUS ULCERATION [None]
  - STEVENS-JOHNSON SYNDROME [None]
